FAERS Safety Report 9334587 (Version 1)
Quarter: 2013Q2

REPORT INFORMATION
  Report Type: Spontaneous
  Country: CO (occurrence: CO)
  Receive Date: 20130606
  Receipt Date: 20130606
  Transmission Date: 20140414
  Serious: Yes (Other)
  Sender: FDA-Public Use
  Company Number: CO-ASTRAZENECA-2013SE38721

PATIENT
  Age: 46 Year
  Sex: Female

DRUGS (1)
  1. FASLODEX [Suspect]
     Route: 030
     Dates: start: 20120101

REACTIONS (4)
  - Von Willebrand^s disease [Not Recovered/Not Resolved]
  - Factor VIII deficiency [Not Recovered/Not Resolved]
  - Haematemesis [Not Recovered/Not Resolved]
  - Menorrhagia [Not Recovered/Not Resolved]
